FAERS Safety Report 7618084-6 (Version None)
Quarter: 2011Q3

REPORT INFORMATION
  Report Type: 
  Country: None (occurrence: None)
  Receive Date: 20110718
  Receipt Date: 20110713
  Transmission Date: 20111222
  Serious: Yes (Other)
  Sender: FDA-Public Use
  Company Number: JP-BRACCO-005018

PATIENT
  Age: 74 Year
  Sex: Male

DRUGS (1)
  1. IOPAMIDOL [Suspect]
     Indication: COMPUTERISED TOMOGRAM THORAX
     Route: 042
     Dates: start: 20110705, end: 20110705

REACTIONS (4)
  - OXYGEN SATURATION DECREASED [None]
  - ERYTHEMA [None]
  - COUGH [None]
  - DYSPNOEA [None]
